FAERS Safety Report 5835479-1 (Version None)
Quarter: 2008Q3

REPORT INFORMATION
  Report Type: 
  Country: None (occurrence: None)
  Receive Date: 20080804
  Receipt Date: 20080721
  Transmission Date: 20090109
  Serious: Yes (Other)
  Sender: FDA-Public Use
  Company Number: 8034976

PATIENT
  Age: 51 Year
  Sex: Female
  Weight: 68.18 kg

DRUGS (5)
  1. KEPPRA [Suspect]
     Indication: CONVULSION
     Dosage: 1000 MG 2/D PO
     Route: 048
     Dates: start: 20080601, end: 20080717
  2. KEPPRA [Suspect]
     Indication: CONVULSION
     Dosage: 2000 MG 2/D PO
     Route: 048
     Dates: start: 20080717
  3. VASOTEC [Concomitant]
  4. PROTONIX [Concomitant]
  5. PRILOSEC [Concomitant]

REACTIONS (1)
  - GASTRIC ULCER HAEMORRHAGE [None]
